FAERS Safety Report 6888334-2 (Version None)
Quarter: 2010Q3

REPORT INFORMATION
  Report Type: 
  Country: None (occurrence: None)
  Receive Date: 20100730
  Receipt Date: 20100728
  Transmission Date: 20110219
  Serious: Yes (Other)
  Sender: FDA-Public Use
  Company Number: NL-ROXANE LABORATORIES, INC.-2010-RO-00921RO

PATIENT
  Age: 57 Year
  Sex: Female

DRUGS (3)
  1. MERCAPTOPURINE [Suspect]
     Indication: CROHN'S DISEASE
  2. PREDNISONE [Suspect]
  3. BUDESONIDE [Suspect]

REACTIONS (1)
  - PANCREATITIS ACUTE [None]
